FAERS Safety Report 21077291 (Version 1)
Quarter: 2022Q3

REPORT INFORMATION
  Report Type: Spontaneous
  Country: US (occurrence: US)
  Receive Date: 20220713
  Receipt Date: 20220713
  Transmission Date: 20221027
  Serious: No
  Sender: FDA-Public Use
  Company Number: US-PFIZER INC-202200944531

PATIENT
  Age: 58 Year
  Sex: Female

DRUGS (5)
  1. PAXLOVID [Suspect]
     Active Substance: NIRMATRELVIR\RITONAVIR
     Indication: COVID-19 treatment
     Dosage: UNK
     Dates: start: 20220630, end: 20220705
  2. QUNOL TURMERIC EXTRA STRENGTH [Concomitant]
     Dosage: UNK
     Dates: start: 20200814
  3. CENTRUM SILVER [ASCORBIC ACID;BETACAROTENE;BIOTIN;CALCIUM;CHROMIUM;COL [Concomitant]
     Dosage: UNK
     Dates: start: 20200814
  4. KIRKLAND SIGNATURE CALCIUM 600MG WITH VITAMIN D3 [Concomitant]
     Dosage: UNK
     Dates: start: 20200814
  5. L-LYSINE [LYSINE] [Concomitant]
     Dosage: UNK, (BRAND: NATURE MADE)
     Dates: start: 20220501

REACTIONS (2)
  - COVID-19 [Recovering/Resolving]
  - Disease recurrence [Recovering/Resolving]

NARRATIVE: CASE EVENT DATE: 20220709
